FAERS Safety Report 8409692-3 (Version None)
Quarter: 2012Q2

REPORT INFORMATION
  Report Type: 
  Country: None (occurrence: None)
  Receive Date: 20120529
  Receipt Date: 20120518
  Transmission Date: 20120825
  Serious: Yes (Other)
  Sender: FDA-Public Use
  Company Number: ACO_30450_2012

PATIENT
  Sex: Female

DRUGS (7)
  1. VITAMIN D [Concomitant]
  2. L-CARNITINE (LEVOCARNITINE) [Concomitant]
  3. PERCOCET [Concomitant]
  4. KLONOPIN [Concomitant]
  5. METHADONE HCL (METHADONE HYDROCHLORIDE) [Concomitant]
  6. AMPYRA [Suspect]
     Indication: PRODUCT USED FOR UNKNOWN INDICATION
     Dosage: 10 MG, BID
     Dates: start: 20100801
  7. VITAMIN B12 [Concomitant]

REACTIONS (6)
  - FOOT FRACTURE [None]
  - MUSCLE SPASTICITY [None]
  - PERIPHERAL COLDNESS [None]
  - FEELING HOT [None]
  - GAIT DISTURBANCE [None]
  - FALL [None]
